FAERS Safety Report 7340554-9 (Version None)
Quarter: 2011Q1

REPORT INFORMATION
  Report Type: 
  Country: None (occurrence: None)
  Receive Date: 20110309
  Receipt Date: 20110302
  Transmission Date: 20110831
  Serious: Yes (Death, Other)
  Sender: FDA-Public Use
  Company Number: AU-JNJFOC-20110303025

PATIENT
  Age: 81 Year
  Sex: Female

DRUGS (1)
  1. DURAGESIC-100 [Suspect]
     Indication: PAIN
     Dosage: 12-25 UG/HR
     Route: 062

REACTIONS (2)
  - DEATH [None]
  - DIABETES INSIPIDUS [None]
